FAERS Safety Report 7563505-0 (Version None)
Quarter: 2011Q2

REPORT INFORMATION
  Report Type: 
  Country: None (occurrence: None)
  Receive Date: 20110622
  Receipt Date: 20110608
  Transmission Date: 20111010
  Serious: Yes (Disabling)
  Sender: FDA-Public Use
  Company Number: IT-PFIZER INC-2011133295

PATIENT

DRUGS (3)
  1. EUTIROX [Concomitant]
     Dosage: 12.5 UG, 1X/DAY
     Route: 048
     Dates: start: 20090720, end: 20090928
  2. SUTENT [Suspect]
     Indication: RENAL CANCER
     Dosage: 50 MG, 1X/DAY
     Route: 048
     Dates: start: 20090720, end: 20090816
  3. OMEPRAZOLE [Concomitant]
     Dosage: 20 MG, 1X/DAY
     Route: 048
     Dates: start: 20090720, end: 20090928

REACTIONS (1)
  - DERMATITIS [None]
